FAERS Safety Report 5509564-8 (Version None)
Quarter: 2007Q4

REPORT INFORMATION
  Report Type: 
  Country: None (occurrence: None)
  Receive Date: 20071106
  Receipt Date: 20071018
  Transmission Date: 20080405
  Serious: Yes (Other)
  Sender: FDA-Public Use
  Company Number: STI-2007-01745

PATIENT

DRUGS (1)
  1. HYDROQUINONE (UNSPECIFIED) (HYDROQUINONE) (HYDROQUINONE) [Suspect]
     Indication: SKIN COSMETIC PROCEDURE

REACTIONS (4)
  - EXTERNAL EAR DISORDER [None]
  - OFF LABEL USE [None]
  - PIGMENTATION DISORDER [None]
  - SKIN HYPERPIGMENTATION [None]
